FAERS Safety Report 18823234 (Version 3)
Quarter: 2021Q1

REPORT INFORMATION
  Report Type: Spontaneous
  Country: US (occurrence: US)
  Receive Date: 20210201
  Receipt Date: 20210308
  Transmission Date: 20210419
  Serious: Yes (Other)
  Sender: FDA-Public Use
  Company Number: US-ABBVIE-21K-163-3749464-00

PATIENT
  Age: 80 Year
  Sex: Male

DRUGS (10)
  1. SYMBICORT [Suspect]
     Active Substance: BUDESONIDE\FORMOTEROL FUMARATE DIHYDRATE
     Indication: PRODUCT USED FOR UNKNOWN INDICATION
     Route: 065
  2. ABIRATERONE. [Suspect]
     Active Substance: ABIRATERONE ACETATE
     Indication: PRODUCT USED FOR UNKNOWN INDICATION
     Route: 065
  3. XTANDI [Suspect]
     Active Substance: ENZALUTAMIDE
     Route: 048
  4. XTANDI [Suspect]
     Active Substance: ENZALUTAMIDE
     Route: 048
  5. LUPRON [Suspect]
     Active Substance: LEUPROLIDE ACETATE
     Indication: PRODUCT USED FOR UNKNOWN INDICATION
     Route: 065
  6. MYRBETRIQ [Concomitant]
     Active Substance: MIRABEGRON
     Indication: PRODUCT USED FOR UNKNOWN INDICATION
  7. XTANDI [Suspect]
     Active Substance: ENZALUTAMIDE
     Route: 048
  8. XTANDI [Suspect]
     Active Substance: ENZALUTAMIDE
     Route: 048
  9. XTANDI [Suspect]
     Active Substance: ENZALUTAMIDE
     Indication: PROSTATE CANCER
     Route: 048
     Dates: start: 20180919
  10. XTANDI [Suspect]
     Active Substance: ENZALUTAMIDE
     Route: 048

REACTIONS (19)
  - Prostatic specific antigen increased [Not Recovered/Not Resolved]
  - Renal disorder [Unknown]
  - Tremor [Recovering/Resolving]
  - Dementia Alzheimer^s type [Unknown]
  - Illness [Unknown]
  - Vision blurred [Unknown]
  - Fatigue [Unknown]
  - Urinary incontinence [Unknown]
  - Bone pain [Unknown]
  - Insomnia [Unknown]
  - Erythema [Unknown]
  - Skin cancer [Unknown]
  - Feeling jittery [Unknown]
  - Lacrimation increased [Unknown]
  - Anxiety [Recovering/Resolving]
  - Chronic obstructive pulmonary disease [Unknown]
  - Fall [Unknown]
  - Hot flush [Unknown]
  - Limb injury [Unknown]

NARRATIVE: CASE EVENT DATE: 20201112
